FAERS Safety Report 4417121-X (Version None)
Quarter: 2004Q2

REPORT INFORMATION
  Report Type: 
  Country: None (occurrence: None)
  Receive Date: 20040628
  Receipt Date: 20040303
  Transmission Date: 20050107
  Serious: Yes (Other)
  Sender: FDA-Public Use
  Company Number: US-JNJFOC-20040504169

PATIENT
  Age: 30 Year
  Sex: Female

DRUGS (5)
  1. PEPCID AC [Suspect]
     Indication: GASTROOESOPHAGEAL REFLUX DISEASE
     Dosage: ORAL
     Route: 048
     Dates: start: 20040221, end: 20040224
  2. NESTAB (NESTABS) TABLETS [Suspect]
     Indication: VITAMIN SUPPLEMENTATION
     Dosage: 1 TABLET QD, PO
     Route: 048
     Dates: start: 20040221, end: 20040225
  3. LOVENOX [Concomitant]
  4. FOLIC ACID [Concomitant]
  5. PYRIDOXINE HCL TAB [Concomitant]

REACTIONS (2)
  - DRUG EXPOSURE DURING PREGNANCY [None]
  - HYPERSENSITIVITY [None]
